FAERS Safety Report 15590656 (Version 1)
Quarter: 2018Q4

REPORT INFORMATION
  Report Type: Spontaneous
  Country: US (occurrence: US)
  Receive Date: 20181106
  Receipt Date: 20181106
  Transmission Date: 20190205
  Serious: Yes (Other)
  Sender: FDA-Public Use
  Company Number: US-NOVOPROD-629820

PATIENT
  Age: 66 Year
  Sex: Male

DRUGS (5)
  1. NOVOLOG [Suspect]
     Active Substance: INSULIN ASPART
     Indication: TYPE 2 DIABETES MELLITUS
     Dosage: UNK
     Route: 058
     Dates: start: 2010
  2. LEVEMIR [Suspect]
     Active Substance: INSULIN DETEMIR
     Dosage: 24U IN AM AND 16 UNITS IN PM
  3. LEVEMIR [Suspect]
     Active Substance: INSULIN DETEMIR
     Dosage: 12 U, BID (AM AND PM)
     Dates: start: 201810
  4. NOVOLOG [Suspect]
     Active Substance: INSULIN ASPART
     Dosage: LESS DOSE
     Route: 058
  5. LEVEMIR [Suspect]
     Active Substance: INSULIN DETEMIR
     Indication: TYPE 2 DIABETES MELLITUS
     Dosage: 24 U, BID
     Route: 058
     Dates: start: 2012

REACTIONS (10)
  - Type 1 diabetes mellitus [Unknown]
  - Intentional dose omission [Not Recovered/Not Resolved]
  - Myocardial infarction [Unknown]
  - Blood cholesterol abnormal [Unknown]
  - Loose tooth [Unknown]
  - Blood glucose fluctuation [Unknown]
  - Intentional product use issue [Not Recovered/Not Resolved]
  - Blood glucose decreased [Recovered/Resolved]
  - Chronic kidney disease [Not Recovered/Not Resolved]
  - Cardiac disorder [Unknown]

NARRATIVE: CASE EVENT DATE: 2017
